FAERS Safety Report 18449052 (Version 3)
Quarter: 2022Q2

REPORT INFORMATION
  Report Type: Spontaneous
  Country: CA (occurrence: CA)
  Receive Date: 20201102
  Receipt Date: 20220630
  Transmission Date: 20220720
  Serious: Yes (Other)
  Sender: FDA-Public Use
  Company Number: CA-SAMSUNG BIOEPIS-SB-2020-09892

PATIENT
  Age: 48 Year
  Sex: Female
  Weight: 142 kg

DRUGS (8)
  1. INFLIXIMAB [Suspect]
     Active Substance: INFLIXIMAB
     Indication: Colitis ulcerative
     Route: 042
  2. CIPRALEX [Concomitant]
     Active Substance: ESCITALOPRAM OXALATE
     Indication: Product used for unknown indication
     Route: 048
  3. CYANOCOBALAMIN [Concomitant]
     Active Substance: CYANOCOBALAMIN
     Indication: Product used for unknown indication
     Dosage: UNKNOWN
     Route: 042
  4. LEVOTHYROXINE [Concomitant]
     Active Substance: LEVOTHYROXINE
     Indication: Product used for unknown indication
     Route: 048
  5. PREDNISONE [Concomitant]
     Active Substance: PREDNISONE
     Indication: Product used for unknown indication
     Route: 065
  6. PREDNISONE [Concomitant]
     Active Substance: PREDNISONE
     Route: 048
  7. SYNTHROID [Concomitant]
     Active Substance: LEVOTHYROXINE SODIUM
     Indication: Product used for unknown indication
     Route: 048
  8. PANTOPRAZOLE MAGNESIUM [Concomitant]
     Active Substance: PANTOPRAZOLE MAGNESIUM
     Indication: Product used for unknown indication
     Route: 048

REACTIONS (22)
  - Anxiety [Unknown]
  - Arthralgia [Unknown]
  - Colitis ulcerative [Unknown]
  - Depressed mood [Unknown]
  - Depression [Unknown]
  - Diarrhoea [Unknown]
  - Fatigue [Unknown]
  - Flank pain [Unknown]
  - Haemorrhoidal haemorrhage [Unknown]
  - Impaired work ability [Unknown]
  - Irritable bowel syndrome [Unknown]
  - Loss of personal independence in daily activities [Unknown]
  - Malaise [Unknown]
  - Myalgia [Unknown]
  - Nausea [Unknown]
  - Weight decreased [Unknown]
  - Drug ineffective [Unknown]
  - Drug level decreased [Unknown]
  - Therapeutic product effect delayed [Unknown]
  - Therapeutic product effect incomplete [Unknown]
  - Intentional product use issue [Unknown]
  - Off label use [Unknown]
